FAERS Safety Report 6964025-4 (Version None)
Quarter: 2010Q3

REPORT INFORMATION
  Report Type: 
  Country: None (occurrence: None)
  Receive Date: 20100902
  Receipt Date: 20100902
  Transmission Date: 20110219
  Serious: Yes (Hospitalization)
  Sender: FDA-Public Use
  Company Number: None

PATIENT
  Sex: Female
  Weight: 69 kg

DRUGS (11)
  1. EXEMESTANE [Suspect]
     Indication: BREAST CANCER METASTATIC
     Dosage: 25MG; 14 DAYS OF 21 DAYS CYCLE
     Dates: start: 20100216
  2. EXEMESTANE [Suspect]
     Indication: BREAST CANCER METASTATIC
     Dosage: 25MG; 14 DAYS OF 21 DAYS CYCLE
     Dates: start: 20100816
  3. VITAMIN B COMPLETX [Concomitant]
  4. CELEBREX [Concomitant]
  5. IBUPROFEN [Concomitant]
  6. LIDODERM [Concomitant]
  7. METHADONE [Concomitant]
  8. MIRALAX [Concomitant]
  9. TRAZODONE HCL [Concomitant]
  10. VALIUM [Concomitant]
  11. ZOMETA [Concomitant]

REACTIONS (9)
  - BLOOD PHOSPHORUS DECREASED [None]
  - BLOOD POTASSIUM DECREASED [None]
  - BREAST CANCER METASTATIC [None]
  - HAEMATOCRIT DECREASED [None]
  - HAEMOGLOBIN DECREASED [None]
  - HYPOTENSION [None]
  - MALIGNANT NEOPLASM PROGRESSION [None]
  - METASTASES TO LIVER [None]
  - WHITE BLOOD CELL COUNT INCREASED [None]
